FAERS Safety Report 22111168 (Version 1)
Quarter: 2023Q1

REPORT INFORMATION
  Report Type: Spontaneous
  Country: US (occurrence: US)
  Receive Date: 20230317
  Receipt Date: 20230317
  Transmission Date: 20230418
  Serious: Yes (Other)
  Sender: FDA-Public Use
  Company Number: US-BAUSCH-BL-2023-004358

PATIENT
  Age: 63 Year
  Sex: Male

DRUGS (18)
  1. TARGRETIN [Suspect]
     Active Substance: BEXAROTENE
     Indication: Cutaneous T-cell lymphoma
     Route: 061
  2. BEXAROTENE [Suspect]
     Active Substance: BEXAROTENE
     Indication: Cutaneous T-cell lymphoma
     Route: 048
  3. BEXAROTENE [Suspect]
     Active Substance: BEXAROTENE
     Dosage: 4 CAPSULES
     Route: 048
     Dates: end: 202009
  4. BEXAROTENE [Suspect]
     Active Substance: BEXAROTENE
     Route: 048
     Dates: start: 202009, end: 202106
  5. BEXAROTENE [Suspect]
     Active Substance: BEXAROTENE
     Route: 048
     Dates: start: 202106
  6. BEXAROTENE [Suspect]
     Active Substance: BEXAROTENE
     Route: 048
  7. LEVOTHYROXINE [Concomitant]
     Active Substance: LEVOTHYROXINE
     Indication: Product used for unknown indication
     Route: 048
  8. LEVOTHYROXINE [Concomitant]
     Active Substance: LEVOTHYROXINE
     Route: 048
  9. LEVOTHYROXINE [Concomitant]
     Active Substance: LEVOTHYROXINE
     Route: 048
  10. CLOBETASOL [Concomitant]
     Active Substance: CLOBETASOL
     Indication: Pruritus
     Route: 061
  11. CLOBETASOL [Concomitant]
     Active Substance: CLOBETASOL
     Route: 061
  12. MUPIROCIN [Concomitant]
     Active Substance: MUPIROCIN
     Indication: Product used for unknown indication
     Route: 061
  13. SILVER SULFADIAZINE [Concomitant]
     Active Substance: SILVER SULFADIAZINE
     Indication: Product used for unknown indication
     Route: 061
  14. CHLORHEXIDINE [Concomitant]
     Active Substance: CHLORHEXIDINE
     Indication: Product used for unknown indication
     Dosage: SOAP USED AS BODY WASH THREE TIMES PER WEEK
  15. DOXYCYCLINE HYCLATE [Concomitant]
     Active Substance: DOXYCYCLINE HYCLATE
     Indication: Product used for unknown indication
     Route: 048
  16. KETOCONAZOLE [Concomitant]
     Active Substance: KETOCONAZOLE
     Indication: Product used for unknown indication
     Route: 061
  17. NYSTATIN [Concomitant]
     Active Substance: NYSTATIN
     Indication: Product used for unknown indication
     Dosage: 1000000 U/ML, 5 ML BY MOUTH, SWISH IN MOUTH AND SWALLOW
  18. CEPHALEXIN [Concomitant]
     Active Substance: CEPHALEXIN

REACTIONS (3)
  - Cutaneous T-cell lymphoma [Recovering/Resolving]
  - Condition aggravated [Recovering/Resolving]
  - Hyperlipidaemia [Unknown]

NARRATIVE: CASE EVENT DATE: 20221101
